FAERS Safety Report 9304590 (Version 6)
Quarter: 2014Q1

REPORT INFORMATION
  Report Type: Report from Study
  Country: IT (occurrence: IT)
  Receive Date: 20130523
  Receipt Date: 20140115
  Transmission Date: 20141002
  Serious: Yes (Hospitalization)
  Sender: FDA-Public Use
  Company Number: IT-BIOGENIDEC-2013BI034722

PATIENT
  Age: 38 Year
  Sex: Female
  Weight: 52 kg

DRUGS (2)
  1. NATALIZUMAB [Suspect]
     Indication: MULTIPLE SCLEROSIS
     Route: 042
     Dates: start: 20120828, end: 20130411
  2. KEPPRA [Concomitant]
     Indication: TREMOR
     Dates: start: 2010, end: 20130411

REACTIONS (1)
  - Polyneuropathy [Not Recovered/Not Resolved]
